FAERS Safety Report 25397156 (Version 2)
Quarter: 2025Q4

REPORT INFORMATION
  Report Type: Spontaneous
  Country: RS (occurrence: RS)
  Receive Date: 20250604
  Receipt Date: 20251205
  Transmission Date: 20260117
  Serious: Yes (Other)
  Sender: NOVARTIS
  Company Number: RS-002147023-NVSC2025RS086630

PATIENT
  Age: 32 Year
  Sex: Female

DRUGS (2)
  1. NILOTINIB [Suspect]
     Active Substance: NILOTINIB
     Indication: Philadelphia positive chronic myeloid leukaemia
     Dosage: 800 MG
     Route: 048
     Dates: start: 202301, end: 202412
  2. ASCIMINIB [Suspect]
     Active Substance: ASCIMINIB
     Indication: Philadelphia positive chronic myeloid leukaemia
     Dosage: 40 MG, (2X1)
     Route: 065
     Dates: start: 2025

REACTIONS (2)
  - Cytopenia [Not Recovered/Not Resolved]
  - Drug resistance [Unknown]
